FAERS Safety Report 15780493 (Version 1)
Quarter: 2019Q1

REPORT INFORMATION
  Report Type: Spontaneous
  Country: US (occurrence: US)
  Receive Date: 20190102
  Receipt Date: 20190102
  Transmission Date: 20190417
  Serious: No
  Sender: FDA-Public Use
  Company Number: US-TEVA-2018-US-994174

PATIENT
  Sex: Female

DRUGS (1)
  1. AJOVY [Suspect]
     Active Substance: FREMANEZUMAB-VFRM
     Dosage: 2 INJECTIONS
     Route: 065
     Dates: start: 20181031

REACTIONS (4)
  - Erythema [Unknown]
  - Contusion [Unknown]
  - Pruritus [Unknown]
  - Injection site reaction [Unknown]
